FAERS Safety Report 7167189-5 (Version None)
Quarter: 2010Q4

REPORT INFORMATION
  Report Type: 
  Country: None (occurrence: None)
  Receive Date: 20101216
  Receipt Date: 20101203
  Transmission Date: 20110411
  Serious: Yes (Hospitalization, Other)
  Sender: FDA-Public Use
  Company Number: PHHY2010BR40192

PATIENT
  Sex: Female

DRUGS (4)
  1. DIOVAN [Suspect]
     Indication: HYPERTENSION
     Dosage: 80 MG, QD
     Route: 048
     Dates: start: 20070101, end: 20090101
  2. SLOW-K [Concomitant]
     Indication: MUSCLE SPASMS
     Dosage: 1 SUGAR COATED TABLET, A DAY
     Route: 048
     Dates: start: 20070101
  3. LASIX [Concomitant]
     Indication: HYPERTENSION
     Dosage: 1 TABLET (40 MG), A DAY
     Route: 048
     Dates: start: 20070101
  4. ALDACTONE [Concomitant]
     Dosage: 1 TABLET (100 MG),A DAY
     Route: 048

REACTIONS (3)
  - BLOOD PRESSURE INCREASED [None]
  - DRUG DOSE OMISSION [None]
  - PULMONARY EMBOLISM [None]
